FAERS Safety Report 11808517 (Version 1)
Quarter: 2015Q4

REPORT INFORMATION
  Report Type: Spontaneous
  Country: US (occurrence: US)
  Receive Date: 20151207
  Receipt Date: 20151207
  Transmission Date: 20160305
  Serious: Yes (Other)
  Sender: FDA-Public Use
  Company Number: US-ROCHE-1581923

PATIENT
  Sex: Female
  Weight: 54.48 kg

DRUGS (1)
  1. ACTEMRA [Suspect]
     Active Substance: TOCILIZUMAB
     Indication: JUVENILE IDIOPATHIC ARTHRITIS
     Dosage: REG
     Route: 042

REACTIONS (7)
  - Pyrexia [Unknown]
  - Rash [Unknown]
  - Dyspnoea [Unknown]
  - Tachycardia [Unknown]
  - Palpitations [Unknown]
  - Flushing [Unknown]
  - Pruritus [Unknown]
